FAERS Safety Report 17683295 (Version 1)
Quarter: 2020Q2

REPORT INFORMATION
  Report Type: Spontaneous
  Country: DE (occurrence: DE)
  Receive Date: 20200420
  Receipt Date: 20200420
  Transmission Date: 20200714
  Serious: Yes (Hospitalization)
  Sender: FDA-Public Use
  Company Number: DE-TEVA-2020-DE-1225286

PATIENT
  Age: 78 Year
  Sex: Female

DRUGS (13)
  1. ATROVENT [Concomitant]
     Active Substance: IPRATROPIUM BROMIDE
     Dosage: REQUIREMENT
  2. SALBUTAMOL [Concomitant]
     Active Substance: ALBUTEROL
     Dosage: REQUIREMENT
  3. HYDROCHLOROTHIAZID/LOSARTAN [Concomitant]
     Dosage: 25|100 MG, 1-0-0-0
  4. LEVOTHYROXIN-NATRIUM [Concomitant]
     Active Substance: LEVOTHYROXINE SODIUM
     Dosage: 150 MICROGRAM DAILY;  1-0-0-0
  5. AMLODIPIN [Concomitant]
     Active Substance: AMLODIPINE BESYLATE
     Dosage: .5 DOSAGE FORMS DAILY; 5 MG, 0-0-0.5-0
  6. XIPAMID [Suspect]
     Active Substance: XIPAMIDE
     Dosage: 20 MILLIGRAM DAILY;  1-0-0-0
  7. NEBIVOLOL. [Suspect]
     Active Substance: NEBIVOLOL
     Dosage: 2.5 MILLIGRAM DAILY;  0-0-1-0
  8. MIRTAZAPIN [Concomitant]
     Active Substance: MIRTAZAPINE
     Dosage: 15 MILLIGRAM DAILY;   0-0-0-1
  9. FOSTER [Concomitant]
     Active Substance: BECLOMETHASONE\FORMOTEROL
     Dosage: 4 DOSAGE FORMS DAILY; 2-0-2-0
  10. PHENPROCOUMON [Concomitant]
     Active Substance: PHENPROCOUMON
     Dosage: 3 MG, ACCORDING TO INR
  11. A.T. EMRA-MED PERLEN [Concomitant]
     Dosage: 1 DOSAGE FORMS DAILY; 0-0-1-0
  12. KLIOGEST 1MG/2MG [Concomitant]
     Dosage: 1|2 MG, 0-0-1-0
  13. OMEPRAZOL [Concomitant]
     Active Substance: OMEPRAZOLE
     Dosage: 40 MILLIGRAM DAILY; 40 MG, 1-0-0-0

REACTIONS (4)
  - Prolonged expiration [Unknown]
  - Wheezing [Unknown]
  - Condition aggravated [Unknown]
  - Acute kidney injury [Unknown]
